FAERS Safety Report 19721142 (Version 4)
Quarter: 2022Q1

REPORT INFORMATION
  Report Type: Spontaneous
  Country: US (occurrence: US)
  Receive Date: 20210818
  Receipt Date: 20220210
  Transmission Date: 20220423
  Serious: Yes (Hospitalization, Other)
  Sender: FDA-Public Use
  Company Number: US-009507513-2108USA003509

PATIENT
  Sex: Female

DRUGS (4)
  1. ALBUTEROL SULFATE [Suspect]
     Active Substance: ALBUTEROL SULFATE
     Dosage: UNK
     Dates: start: 2017
  2. PROVENTIL [Suspect]
     Active Substance: ALBUTEROL
     Indication: Routine health maintenance
     Dosage: 2 PUFFS 2 TIMES DAY
     Dates: start: 20210620
  3. PROVENTIL [Suspect]
     Active Substance: ALBUTEROL
     Indication: Routine health maintenance
     Dosage: 2 PUFFS TWO TIMES DAY
     Dates: start: 20210721
  4. VENTOLIN [Suspect]
     Active Substance: ALBUTEROL SULFATE
     Dosage: UNK
     Dates: start: 2017

REACTIONS (14)
  - Oxygen saturation decreased [Recovered/Resolved]
  - Cyanosis [Recovered/Resolved]
  - Pneumonia [Recovered/Resolved]
  - Dyspnoea [Unknown]
  - Ill-defined disorder [Unknown]
  - Incorrect dose administered by device [Unknown]
  - Device defective [Unknown]
  - Poor quality device used [Unknown]
  - Incorrect dose administered by device [Unknown]
  - Device defective [Unknown]
  - Poor quality device used [Unknown]
  - Device delivery system issue [Unknown]
  - Device delivery system issue [Unknown]
  - Product supply issue [Unknown]

NARRATIVE: CASE EVENT DATE: 20170101
